FAERS Safety Report 20627630 (Version 1)
Quarter: 2022Q1

REPORT INFORMATION
  Report Type: Spontaneous
  Country: US (occurrence: None)
  Receive Date: 20220323
  Receipt Date: 20220323
  Transmission Date: 20220423
  Serious: No
  Sender: FDA-Public Use
  Company Number: 2022A084678

PATIENT
  Sex: Male
  Weight: 77.1 kg

DRUGS (1)
  1. CALQUENCE [Suspect]
     Active Substance: ACALABRUTINIB
     Indication: Leukaemia
     Route: 048
     Dates: start: 202112

REACTIONS (5)
  - Headache [Recovering/Resolving]
  - Arthralgia [Recovering/Resolving]
  - Constipation [Unknown]
  - Joint stiffness [Recovering/Resolving]
  - Mass [Recovering/Resolving]
